FAERS Safety Report 8098210-8 (Version None)
Quarter: 2012Q1

REPORT INFORMATION
  Report Type: 
  Country: None (occurrence: None)
  Receive Date: 20120128
  Receipt Date: 20110808
  Transmission Date: 20120608
  Serious: No
  Sender: FDA-Public Use
  Company Number: US-ABBOTT-11P-163-0845190-00

PATIENT
  Age: 48 Year
  Sex: Male

DRUGS (4)
  1. DEPO-TESTOSTERONE [Concomitant]
     Indication: BLOOD TESTOSTERONE DECREASED
     Route: 061
     Dates: start: 20070101
  2. DICLOFENAC [Concomitant]
     Indication: ARTHRALGIA
  3. BENICAR [Concomitant]
     Indication: BLOOD PRESSURE ABNORMAL
     Route: 048
     Dates: start: 20060101
  4. HUMIRA [Suspect]
     Indication: PSORIASIS
     Dates: start: 20080101

REACTIONS (7)
  - PHARYNGITIS STREPTOCOCCAL [None]
  - OROPHARYNGEAL PAIN [None]
  - ARTHRITIS [None]
  - UPPER RESPIRATORY TRACT INFECTION [None]
  - HYPERSENSITIVITY [None]
  - MENISCUS LESION [None]
  - RESPIRATORY TRACT CONGESTION [None]
